FAERS Safety Report 24969051 (Version 1)
Quarter: 2025Q1

REPORT INFORMATION
  Report Type: Report from Study
  Country: US (occurrence: US)
  Receive Date: 20250214
  Receipt Date: 20250214
  Transmission Date: 20250409
  Serious: Yes (Other)
  Sender: AMNEAL
  Company Number: US-AMNEAL PHARMACEUTICALS-2024-AMRX-04750

PATIENT
  Sex: Female
  Weight: 47.6 kg

DRUGS (13)
  1. CARBIDOPA\LEVODOPA [Suspect]
     Active Substance: CARBIDOPA\LEVODOPA
     Indication: Parkinson^s disease
     Dosage: 48.75,.195; 1 CAPSULES, 4 /DAY
     Route: 048
     Dates: start: 20231004, end: 20240926
  2. CARBIDOPA\LEVODOPA [Suspect]
     Active Substance: CARBIDOPA\LEVODOPA
     Route: 048
     Dates: start: 20240927
  3. SINEMET [Suspect]
     Active Substance: CARBIDOPA\LEVODOPA
     Indication: Parkinson^s disease
     Dosage: 25-100 MG; 0.5 TABLETS, 2 /DAY TAKE WITH RYTARY 145 MG AT 4 PM.
     Route: 048
     Dates: start: 20220922
  4. LIPITOR [Concomitant]
     Active Substance: ATORVASTATIN CALCIUM
     Indication: Product used for unknown indication
     Route: 048
     Dates: start: 20230913
  5. CHOLECALCIFEROL [Concomitant]
     Active Substance: CHOLECALCIFEROL
     Indication: Product used for unknown indication
     Dosage: 25 MCG; 1 CAPSULES, 2 /DAY
     Route: 048
  6. CLONAZEPAM [Concomitant]
     Active Substance: CLONAZEPAM
     Indication: Product used for unknown indication
     Dosage: 0.5 MG; 1 TABLETS, 2 /DAY
     Route: 048
  7. METOPROLOL SUCCINATE [Concomitant]
     Active Substance: METOPROLOL SUCCINATE
     Indication: Product used for unknown indication
     Dosage: 50 MG; 1 TABLETS, 1 /DAY
     Route: 048
  8. METOPROLOL SUCCINATE [Concomitant]
     Active Substance: METOPROLOL SUCCINATE
     Dosage: 25 MG; 1 TABLETS, 1 /DAY
     Route: 048
  9. PROAMATINE [Concomitant]
     Active Substance: MIDODRINE HYDROCHLORIDE
     Indication: Product used for unknown indication
     Dosage: 10 MG; 1 TABLETS, 3 /DAY
     Route: 048
  10. SEROQUEL [Concomitant]
     Active Substance: QUETIAPINE FUMARATE
     Indication: Product used for unknown indication
     Dosage: 25 MG; 0.5 TABLETS, BEDTIME
     Route: 048
  11. SEROQUEL [Concomitant]
     Active Substance: QUETIAPINE FUMARATE
     Dosage: 25 MG; 1 TABLETS, BEDTIME
     Route: 048
     Dates: start: 20241120
  12. VENLAFAXINE [Concomitant]
     Active Substance: VENLAFAXINE HYDROCHLORIDE
     Indication: Product used for unknown indication
     Dosage: 1 CAPSULES (150 MG), 1 /DAY
     Route: 048
  13. VITAMIN B COMPLEX [Concomitant]
     Active Substance: CYANOCOBALAMIN\DEXPANTHENOL\NIACINAMIDE\PYRIDOXINE HYDROCHLORIDE\RIBOFLAVIN 5^-PHOSPHATE SODIUM\THIA
     Indication: Product used for unknown indication
     Dosage: 1 CAPSULES, QD
     Route: 048

REACTIONS (20)
  - Syncope [Unknown]
  - Essential tremor [Unknown]
  - Gait disturbance [Unknown]
  - Fall [Unknown]
  - Sleep disorder [Unknown]
  - Sleep talking [Unknown]
  - Fatigue [Unknown]
  - Weight fluctuation [Unknown]
  - Back pain [Unknown]
  - Speech disorder [Unknown]
  - Neck pain [Unknown]
  - Musculoskeletal stiffness [Unknown]
  - Dysphonia [Unknown]
  - Reduced facial expression [Unknown]
  - Parkinsonian rest tremor [Unknown]
  - Therapeutic response shortened [Unknown]
  - Hypotension [Unknown]
  - Constipation [Unknown]
  - Abnormal dreams [Unknown]
  - Somnolence [Unknown]
